FAERS Safety Report 17994358 (Version 5)
Quarter: 2021Q2

REPORT INFORMATION
  Report Type: Report from Study
  Country: US (occurrence: US)
  Receive Date: 20200708
  Receipt Date: 20210513
  Transmission Date: 20210717
  Serious: Yes (Hospitalization, Other)
  Sender: FDA-Public Use
  Company Number: US-INSMED, INC.-US-INS-20-01138

PATIENT

DRUGS (2)
  1. ARIKAYCE [Suspect]
     Active Substance: AMIKACIN
     Indication: PRODUCT USED FOR UNKNOWN INDICATION
     Dosage: 590 MILLIGRAM, QD
     Route: 055
     Dates: start: 20200425, end: 2020
  2. ARIKAYCE [Suspect]
     Active Substance: AMIKACIN
     Dosage: 590 MILLIGRAM, UNK
     Route: 055
     Dates: start: 2020, end: 20200628

REACTIONS (18)
  - Lung carcinoma cell type unspecified stage IV [Unknown]
  - Dyspnoea [Recovering/Resolving]
  - Abnormal faeces [Unknown]
  - Intentional dose omission [Unknown]
  - Urine odour abnormal [Unknown]
  - Asthenia [Recovering/Resolving]
  - Parosmia [Unknown]
  - Taste disorder [Unknown]
  - Chest discomfort [Unknown]
  - Skin odour abnormal [Unknown]
  - Illness [Recovering/Resolving]
  - Drug dose omission by device [Unknown]
  - Night sweats [Unknown]
  - Feeling abnormal [Unknown]
  - Nausea [Unknown]
  - Hospitalisation [Unknown]
  - Cough [Unknown]
  - Device issue [Unknown]

NARRATIVE: CASE EVENT DATE: 2020
